FAERS Safety Report 8972101 (Version 1)
Quarter: 2012Q4

REPORT INFORMATION
  Report Type: 
  Country: US (occurrence: US)
  Receive Date: 20121218
  Receipt Date: 20121218
  Transmission Date: 20130627
  Serious: Yes (Other)
  Sender: FDA-Public Use
  Company Number: US-JNJFOC-20121205457

PATIENT
  Sex: Male

DRUGS (1)
  1. NICOTINE POLACRILEX GUM [Suspect]
     Indication: TOBACCO ABUSE
     Dosage: 4-5 chewing gums
     Route: 048
     Dates: start: 2011

REACTIONS (3)
  - Nicotine dependence [Not Recovered/Not Resolved]
  - Intentional drug misuse [Unknown]
  - Drug administration error [Unknown]
